FAERS Safety Report 6024905-3 (Version None)
Quarter: 2008Q4

REPORT INFORMATION
  Report Type: 
  Country: None (occurrence: None)
  Receive Date: 20081231
  Receipt Date: 20081224
  Transmission Date: 20090506
  Serious: Yes (Death)
  Sender: FDA-Public Use
  Company Number: US-JNJCH-2008058315

PATIENT
  Age: 92 Year
  Sex: Female
  Weight: 53.1 kg

DRUGS (2)
  1. NEOSPORIN [Suspect]
     Indication: WOUND
     Dosage: TEXT:^AN UNDETERMINED LARGE AMT.^ 2-4 HRS.
     Route: 061
  2. VASELINE [Suspect]
     Indication: WOUND
     Dosage: TEXT:LARGE AMT. 2-4X DAILY
     Route: 061

REACTIONS (5)
  - DEATH [None]
  - EXPIRED DRUG ADMINISTERED [None]
  - INAPPROPRIATE SCHEDULE OF DRUG ADMINISTRATION [None]
  - INCORRECT DOSE ADMINISTERED [None]
  - OFF LABEL USE [None]
